FAERS Safety Report 4771961-6 (Version None)
Quarter: 2005Q3

REPORT INFORMATION
  Report Type: 
  Country: None (occurrence: None)
  Receive Date: 20050916
  Receipt Date: 20050908
  Transmission Date: 20060218
  Serious: Yes (Hospitalization)
  Sender: FDA-Public Use
  Company Number: US-KINGPHARMUSA00001-K200501183

PATIENT
  Age: 91 Year
  Sex: Male

DRUGS (6)
  1. ALTACE [Suspect]
     Dosage: 5 MG, QD
     Route: 048
     Dates: end: 20050802
  2. MODURETIC 5-50 [Suspect]
     Dosage: 1 U, QD
     Route: 048
     Dates: end: 20050802
  3. REMINYL [Concomitant]
     Dosage: 1 U, UNK
     Route: 048
     Dates: end: 20050802
  4. LOXEN [Concomitant]
     Dosage: 50 MG, UNK
     Route: 048
     Dates: end: 20050802
  5. EBIXA [Concomitant]
  6. PLAVIX [Concomitant]
     Route: 048

REACTIONS (4)
  - CONFUSIONAL STATE [None]
  - DEHYDRATION [None]
  - HYPERKALAEMIA [None]
  - RENAL FAILURE ACUTE [None]
